FAERS Safety Report 4344099-X (Version None)
Quarter: 2004Q2

REPORT INFORMATION
  Report Type: 
  Country: None (occurrence: None)
  Receive Date: 20040419
  Receipt Date: 20040408
  Transmission Date: 20050107
  Serious: Yes (Other)
  Sender: FDA-Public Use
  Company Number: 2004-01-1021

PATIENT

DRUGS (3)
  1. BECLOMETHASONE DIPROPIONATE [Suspect]
     Indication: ASTHMA
  2. BUDESONIDE [Suspect]
     Indication: ASTHMA
  3. CORTICOSTERIOD NOS [Suspect]
     Indication: ASTHMA
     Dosage: ORAL
     Route: 048

REACTIONS (1)
  - CATARACT SUBCAPSULAR [None]
